FAERS Safety Report 23370156 (Version 3)
Quarter: 2024Q1

REPORT INFORMATION
  Report Type: Report from Study
  Country: US (occurrence: US)
  Receive Date: 20240105
  Receipt Date: 20240305
  Transmission Date: 20240410
  Serious: Yes (Hospitalization)
  Sender: FDA-Public Use
  Company Number: US-UCBSA-2023061151

PATIENT
  Age: 78 Year
  Sex: Female

DRUGS (3)
  1. BRIVARACETAM [Suspect]
     Active Substance: BRIVARACETAM
     Indication: Seizure
     Dosage: 100 MILLIGRAM, 2X/DAY (BID)
     Route: 048
     Dates: start: 2019
  2. BRIVARACETAM [Suspect]
     Active Substance: BRIVARACETAM
     Dosage: 200 MILLIGRAM, 2X/DAY (BID)
     Route: 048
     Dates: start: 2020
  3. VIMPAT [Suspect]
     Active Substance: LACOSAMIDE
     Indication: Seizure
     Dosage: 150 MILLIGRAM, 2X/DAY (BID)
     Route: 048
     Dates: start: 2019

REACTIONS (2)
  - Cerebrovascular accident [Recovered/Resolved]
  - Rehabilitation therapy [Unknown]

NARRATIVE: CASE EVENT DATE: 20231225
